FAERS Safety Report 9051155 (Version 2)
Quarter: 2013Q1

REPORT INFORMATION
  Report Type: Spontaneous
  Country: US (occurrence: US)
  Receive Date: 20130206
  Receipt Date: 20130315
  Transmission Date: 20140127
  Serious: No
  Sender: FDA-Public Use
  Company Number: US-PFIZER INC-2013047056

PATIENT
  Age: 68 Year
  Sex: Female

DRUGS (17)
  1. CELECOXIB [Suspect]
     Dosage: UNK
  2. DICLOFENAC [Suspect]
     Dosage: UNK
  3. IBUPROFEN [Suspect]
     Dosage: UNK
  4. NAPROXEN SODIUM [Suspect]
     Dosage: UNK
  5. OXAPROZIN [Suspect]
     Dosage: UNK
  6. PIROXICAM [Suspect]
     Dosage: UNK
  7. ETODOLAC [Suspect]
     Dosage: UNK
  8. KETOROLAC TROMETHAMINE [Suspect]
     Dosage: UNK
  9. MELOXICAM [Suspect]
     Dosage: UNK
  10. KETOPROFEN [Suspect]
     Dosage: UNK
  11. FLURBIPROFEN [Suspect]
     Dosage: UNK
  12. FENOPROFEN [Suspect]
     Dosage: UNK
  13. INDOMETHACIN [Suspect]
     Dosage: UNK
  14. TOLMETIN [Suspect]
     Dosage: UNK
  15. DIFLUNISAL [Suspect]
     Dosage: UNK
  16. NABUMETONE [Suspect]
     Dosage: UNK
  17. SULINDAC [Suspect]
     Dosage: UNK

REACTIONS (1)
  - Drug hypersensitivity [Unknown]
